FAERS Safety Report 19303126 (Version 2)
Quarter: 2021Q2

REPORT INFORMATION
  Report Type: Spontaneous
  Country: US (occurrence: US)
  Receive Date: 20210524
  Receipt Date: 20210603
  Transmission Date: 20210717
  Serious: Yes (Hospitalization, Other)
  Sender: FDA-Public Use
  Company Number: US-VALIDUS PHARMACEUTICALS LLC-US-2021VAL001205

PATIENT

DRUGS (1)
  1. FUROSEMIDE. [Suspect]
     Active Substance: FUROSEMIDE
     Indication: ACUTE LEFT VENTRICULAR FAILURE
     Dosage: UNK
     Route: 065

REACTIONS (8)
  - Neurological decompensation [Recovering/Resolving]
  - Wernicke-Korsakoff syndrome [Recovered/Resolved]
  - Encephalopathy [Recovered/Resolved]
  - Renal disorder [Recovered/Resolved]
  - Nystagmus [Recovered/Resolved]
  - Tremor [Recovered/Resolved]
  - Vitamin B complex deficiency [Recovered/Resolved]
  - Vitamin B1 deficiency [Recovered/Resolved]
